FAERS Safety Report 7259654-7 (Version None)
Quarter: 2011Q1

REPORT INFORMATION
  Report Type: 
  Country: None (occurrence: None)
  Receive Date: 20110130
  Receipt Date: 20101013
  Transmission Date: 20110831
  Serious: No
  Sender: FDA-Public Use
  Company Number: US-ABBOTT-10P-163-0647915-00

PATIENT
  Sex: Female
  Weight: 88.53 kg

DRUGS (6)
  1. PROZAC [Concomitant]
     Indication: BIPOLAR DISORDER
  2. OXYCODONE [Concomitant]
     Indication: RHEUMATOID ARTHRITIS
     Dosage: UP TO 3 TABLETS DAILY AS NEEDED
  3. HUMIRA [Suspect]
     Indication: RHEUMATOID ARTHRITIS
     Route: 058
     Dates: start: 20100101, end: 20100801
  4. SEROQUEL [Concomitant]
     Indication: BIPOLAR DISORDER
  5. HUMIRA [Suspect]
     Dates: start: 20080101, end: 20091001
  6. LISINOPRIL [Concomitant]
     Indication: HYPERTENSION

REACTIONS (5)
  - ARTHRALGIA [None]
  - HYPOAESTHESIA [None]
  - JOINT SWELLING [None]
  - PAIN [None]
  - DRUG INEFFECTIVE [None]
